FAERS Safety Report 16830662 (Version 3)
Quarter: 2019Q4

REPORT INFORMATION
  Report Type: Spontaneous
  Country: JP (occurrence: JP)
  Receive Date: 20190920
  Receipt Date: 20191021
  Transmission Date: 20200122
  Serious: Yes (Hospitalization, Other)
  Sender: FDA-Public Use
  Company Number: JP-TEVA-2019-JP-1111755

PATIENT
  Age: 75 Year
  Sex: Female
  Weight: 42.7 kg

DRUGS (18)
  1. EQUA [Concomitant]
     Active Substance: VILDAGLIPTIN
     Route: 065
  2. AMITIZA [Concomitant]
     Active Substance: LUBIPROSTONE
     Dates: start: 20180427
  3. RIFAXIMIN. [Concomitant]
     Active Substance: RIFAXIMIN
     Route: 065
     Dates: start: 20180712
  4. NEUPRO [Concomitant]
     Active Substance: ROTIGOTINE
     Route: 065
     Dates: start: 20180701, end: 20190909
  5. ALOSENN [Concomitant]
     Route: 065
     Dates: start: 20180427
  6. AZILECT [Suspect]
     Active Substance: RASAGILINE MESYLATE
     Indication: PARKINSON^S DISEASE
     Dosage: .5 MILLIGRAM DAILY;
     Route: 048
     Dates: start: 20190712, end: 20190904
  7. PIARLE [Concomitant]
     Active Substance: LACTULOSE
     Dates: start: 20180711
  8. REQUIP [Concomitant]
     Active Substance: ROPINIROLE HYDROCHLORIDE
     Route: 065
  9. ZINC. [Concomitant]
     Active Substance: ZINC
     Route: 065
     Dates: start: 20181212
  10. LANSOPRAZOLE. [Concomitant]
     Active Substance: LANSOPRAZOLE
     Route: 065
     Dates: start: 20181002
  11. MIYA-BM [Concomitant]
     Active Substance: CLOSTRIDIUM BUTYRICUM SPORES STRAIN M-55
     Dates: start: 20181002
  12. SPIRONOLACTONE. [Concomitant]
     Active Substance: SPIRONOLACTONE
     Route: 065
     Dates: start: 20181120
  13. DOPACOL [Concomitant]
     Active Substance: CARBIDOPA\LEVODOPA
     Route: 065
     Dates: start: 20171120
  14. FUROSEMIDE. [Concomitant]
     Active Substance: FUROSEMIDE
     Route: 065
     Dates: start: 20181130
  15. URSODEOXYCHOLIC ACID [Concomitant]
     Active Substance: URSODIOL
     Route: 065
     Dates: start: 20180709
  16. YOKUKANSAN [Concomitant]
     Active Substance: HERBALS
     Route: 065
     Dates: start: 20190405, end: 20190917
  17. DOMPERIDONE [Concomitant]
     Active Substance: DOMPERIDONE
     Route: 065
     Dates: start: 20171215, end: 20190917
  18. AMINOLEBAN EN [Concomitant]
     Active Substance: UNSPECIFIED INGREDIENT
     Dates: start: 20180913

REACTIONS (12)
  - Subdural haematoma [Recovered/Resolved]
  - Blood pressure increased [Unknown]
  - Blood pressure decreased [Recovering/Resolving]
  - Contusion [Unknown]
  - Hypertensive crisis [Recovered/Resolved]
  - Hyperhidrosis [Unknown]
  - Fall [Recovering/Resolving]
  - Loss of consciousness [Recovering/Resolving]
  - Headache [Recovered/Resolved]
  - Dizziness [Unknown]
  - Fall [Unknown]
  - Altered state of consciousness [Recovered/Resolved]

NARRATIVE: CASE EVENT DATE: 20190818
